FAERS Safety Report 6747225-8 (Version None)
Quarter: 2010Q2

REPORT INFORMATION
  Report Type: 
  Country: None (occurrence: None)
  Receive Date: 20100528
  Receipt Date: 20100521
  Transmission Date: 20101027
  Serious: Yes (Other)
  Sender: FDA-Public Use
  Company Number: JP-JNJFOC-20100509134

PATIENT
  Sex: Male
  Weight: 22.23 kg

DRUGS (32)
  1. DUROTEP MT PATCH [Suspect]
     Indication: CANCER PAIN
     Route: 062
  2. DUROTEP MT PATCH [Suspect]
     Route: 062
  3. DUROTEP MT PATCH [Suspect]
     Route: 062
  4. DUROTEP MT PATCH [Suspect]
     Route: 062
  5. DUROTEP MT PATCH [Suspect]
     Route: 062
  6. DUROTEP MT PATCH [Suspect]
     Route: 062
  7. DUROTEP MT PATCH [Suspect]
     Route: 062
  8. OXYCODONE HCL [Suspect]
     Indication: CANCER PAIN
     Route: 048
  9. OXYCODONE HCL [Suspect]
     Route: 048
  10. OXYCODONE HCL [Suspect]
     Route: 048
  11. OXYCODONE HCL [Suspect]
     Route: 048
  12. OXYCODONE HCL [Suspect]
     Dosage: 5MGX3 TIMES, 10MGX1 TIME
     Route: 048
  13. OXYCODONE HCL [Suspect]
     Route: 048
  14. IRESSA [Suspect]
     Indication: DRUG USE FOR UNKNOWN INDICATION
     Route: 048
  15. OXYCONTIN [Concomitant]
     Indication: CANCER PAIN
     Route: 048
  16. OXYCONTIN [Concomitant]
     Route: 048
  17. PANTOSIN [Concomitant]
     Indication: CONSTIPATION
     Route: 048
  18. MAGNESIUM OXIDE [Concomitant]
     Indication: CONSTIPATION
     Route: 048
  19. MUCOSTA [Concomitant]
     Indication: PROPHYLAXIS
     Route: 048
  20. LOXONIN [Concomitant]
     Indication: ANALGESIC THERAPY
     Route: 048
  21. TAKEPRON [Concomitant]
     Indication: PROPHYLAXIS
     Route: 048
  22. MYSLEE [Concomitant]
     Indication: PROPHYLAXIS
     Route: 048
  23. LAXOBERON [Concomitant]
     Indication: CONSTIPATION
     Route: 048
  24. LECICARBON [Concomitant]
     Indication: CONSTIPATION
     Route: 054
  25. TEGRETOL [Concomitant]
     Indication: ANALGESIC THERAPY
     Route: 048
  26. VOLTAREN [Concomitant]
     Indication: ANALGESIC THERAPY
     Route: 054
  27. YAKUBAN [Concomitant]
     Indication: ANALGESIC THERAPY
     Route: 062
  28. PYRINAZIN [Concomitant]
     Indication: ANALGESIC THERAPY
     Route: 048
  29. KENEI G (GLYCERIN) [Concomitant]
     Indication: CONSTIPATION
     Route: 065
  30. GASTER D [Concomitant]
     Indication: PROPHYLAXIS
     Route: 065
  31. EBASTINE [Concomitant]
     Indication: PROPHYLAXIS
     Route: 048
  32. VOLTAREN [Concomitant]
     Route: 054

REACTIONS (4)
  - CONSTIPATION [None]
  - DELIRIUM [None]
  - DYSPHAGIA [None]
  - STOMATITIS [None]
